FAERS Safety Report 8965752 (Version 1)
Quarter: 2012Q4

REPORT INFORMATION
  Report Type: Spontaneous
  Country: JP (occurrence: None)
  Receive Date: 20121204
  Receipt Date: 20121204
  Transmission Date: 20130627
  Serious: Yes (Other)
  Sender: FDA-Public Use
  Company Number: 2012-20923

PATIENT
  Sex: Female

DRUGS (2)
  1. FLUDARABINE PHOSPHATE [Suspect]
     Dates: start: 200202
  2. FLUDARABINE PHOSPHATE [Suspect]
     Dates: start: 200909

REACTIONS (1)
  - Hodgkin^s disease mixed cellularity stage unspecified [None]
